FAERS Safety Report 15355688 (Version 4)
Quarter: 2019Q1

REPORT INFORMATION
  Report Type: Other
  Country: NL (occurrence: NL)
  Receive Date: 20180906
  Receipt Date: 20190201
  Transmission Date: 20190417
  Serious: Yes (Hospitalization, Other)
  Sender: FDA-Public Use
  Company Number: NL-APOTEX-2018AP020354

PATIENT
  Age: 62 Year
  Sex: Male

DRUGS (8)
  1. FENTANYL. [Interacting]
     Active Substance: FENTANYL
     Dosage: 75 MCG/HOUR, UNKNOWN FREQ.
     Route: 062
  2. ENZALUTAMIDE [Interacting]
     Active Substance: ENZALUTAMIDE
     Indication: HORMONE-REFRACTORY PROSTATE CANCER
     Dosage: UNK, UNKNOWN FREQ.
     Route: 065
  3. DEXAMETHASONE. [Suspect]
     Active Substance: DEXAMETHASONE
     Indication: METASTASES TO BONE
     Dosage: 16 MG, QD
     Route: 065
  4. PREGABALIN. [Suspect]
     Active Substance: PREGABALIN
     Indication: PAIN
     Dosage: UNK
     Route: 062
  5. AMITRIPTYLINE [Suspect]
     Active Substance: AMITRIPTYLINE
     Indication: PAIN
  6. AMITRIPTYLINE [Suspect]
     Active Substance: AMITRIPTYLINE
     Indication: METASTASES TO BONE
     Dosage: UNK
     Route: 062
  7. ENZALUTAMIDE [Interacting]
     Active Substance: ENZALUTAMIDE
     Indication: HORMONE-REFRACTORY PROSTATE CANCER
     Dosage: UNK, UNKNOWN FREQ.
     Route: 065
  8. FENTANYL. [Interacting]
     Active Substance: FENTANYL
     Indication: PAIN
     Dosage: UNK UNK, UNKNOWN FREQ.
     Route: 062

REACTIONS (8)
  - Cervical vertebral fracture [Unknown]
  - Drug interaction [Unknown]
  - Pain [Recovering/Resolving]
  - Drug ineffective [Unknown]
  - Thoracic vertebral fracture [Unknown]
  - Drug interaction [Recovering/Resolving]
  - Malignant neoplasm progression [Recovering/Resolving]
  - Spinal cord compression [Recovering/Resolving]
